FAERS Safety Report 7605485-5 (Version None)
Quarter: 2011Q3

REPORT INFORMATION
  Report Type: 
  Country: None (occurrence: None)
  Receive Date: 20110713
  Receipt Date: 20110707
  Transmission Date: 20111222
  Serious: Yes (Other)
  Sender: FDA-Public Use
  Company Number: US-PFIZER INC-2006069808

PATIENT
  Sex: Female

DRUGS (11)
  1. NEURONTIN [Suspect]
     Dosage: 300 MG, 2X/DAY
     Dates: start: 19980919
  2. NEURONTIN [Suspect]
     Dosage: 600 MG, 3X/DAY
     Dates: start: 20000607, end: 20010101
  3. NEURONTIN [Suspect]
     Dosage: 300MG CAPSULES FIVE TIMES A DAY
     Dates: start: 20010612
  4. NEURONTIN [Suspect]
     Dosage: 300 MG, 3X/DAY
     Dates: start: 20000324
  5. NEURONTIN [Suspect]
     Dosage: 600 MG, 2X/DAY
     Dates: start: 20010331
  6. NEURONTIN [Suspect]
     Dosage: 300 MG, 3X/DAY
     Dates: start: 19981127, end: 19990101
  7. NEURONTIN [Suspect]
     Dosage: 300 MG, 4X/DAY
     Dates: start: 20000427
  8. NEURONTIN [Suspect]
     Dosage: 300MG CAPSULES PER DAY
     Dates: start: 19980421, end: 19980101
  9. NEURONTIN [Suspect]
     Dosage: 100MG CAPSULES SIX TIMES A DAY
     Dates: start: 19991108, end: 20000101
  10. NEURONTIN [Suspect]
     Dosage: 300MG CAPSULES PER DAY
     Dates: start: 19990530
  11. NEURONTIN [Suspect]
     Dosage: 600 MG, 3X/DAY
     Dates: start: 20010830

REACTIONS (1)
  - SUICIDE ATTEMPT [None]
